FAERS Safety Report 17647074 (Version 5)
Quarter: 2020Q2

REPORT INFORMATION
  Report Type: Spontaneous
  Country: US (occurrence: US)
  Receive Date: 20200408
  Receipt Date: 20200520
  Transmission Date: 20200713
  Serious: Yes (Death, Other)
  Sender: FDA-Public Use
  Company Number: US-GILEAD-2020-0458033

PATIENT
  Age: 57 Year
  Sex: Male
  Weight: 132.6 kg

DRUGS (40)
  1. LEVETIRACETAM. [Concomitant]
     Active Substance: LEVETIRACETAM
     Dosage: 750 MG
     Route: 048
     Dates: start: 20200202, end: 20200326
  2. DOCUSATE SODIUM. [Concomitant]
     Active Substance: DOCUSATE SODIUM
  3. GENTAMICIN. [Concomitant]
     Active Substance: GENTAMICIN
  4. POTASSIUM ACETATE. [Concomitant]
     Active Substance: POTASSIUM ACETATE
  5. YESCARTA [Suspect]
     Active Substance: AXICABTAGENE CILOLEUCEL
     Indication: DIFFUSE LARGE B-CELL LYMPHOMA
     Dosage: UNK, SINGLE DOSE
     Route: 042
     Dates: start: 20200124, end: 20200124
  6. MORPHINE [Concomitant]
     Active Substance: MORPHINE
  7. ALBUMIN [Concomitant]
     Active Substance: ALBUMIN HUMAN
  8. IVIGLOB EX [Concomitant]
     Active Substance: HUMAN IMMUNOGLOBULIN G
  9. LACTULOSE. [Concomitant]
     Active Substance: LACTULOSE
  10. TRAMADOL. [Concomitant]
     Active Substance: TRAMADOL
  11. ERTAPENEM. [Concomitant]
     Active Substance: ERTAPENEM SODIUM
     Indication: URINARY TRACT INFECTION
  12. ESCITALOPRAM [Concomitant]
     Active Substance: ESCITALOPRAM OXALATE
  13. FUROSEMIDE. [Concomitant]
     Active Substance: FUROSEMIDE
  14. LEVOTHYROXINE. [Concomitant]
     Active Substance: LEVOTHYROXINE
  15. POTASSIUM CHLORIDE. [Concomitant]
     Active Substance: POTASSIUM CHLORIDE
  16. VALACYCLOVIR [Concomitant]
     Active Substance: VALACYCLOVIR HYDROCHLORIDE
  17. BACLOFEN. [Concomitant]
     Active Substance: BACLOFEN
  18. NEUPOGEN [Concomitant]
     Active Substance: FILGRASTIM
  19. LIDOCAINE. [Concomitant]
     Active Substance: LIDOCAINE
  20. PANTOPRAZOLE [Concomitant]
     Active Substance: PANTOPRAZOLE
  21. PROCHLORPERAZINE. [Concomitant]
     Active Substance: PROCHLORPERAZINE
  22. LEVETIRACETAM. [Concomitant]
     Active Substance: LEVETIRACETAM
     Dosage: 750 UNK
     Route: 048
     Dates: start: 20200124, end: 20200221
  23. AMLODIPINE [Concomitant]
     Active Substance: AMLODIPINE BESYLATE
  24. DIPHENHYDRAMINE. [Concomitant]
     Active Substance: DIPHENHYDRAMINE
  25. FLUCONAZOLE. [Concomitant]
     Active Substance: FLUCONAZOLE
  26. HYDROMORPHONE [Concomitant]
     Active Substance: HYDROMORPHONE
  27. VANCOMYCIN [Concomitant]
     Active Substance: VANCOMYCIN
  28. LEVETIRACETAM. [Concomitant]
     Active Substance: LEVETIRACETAM
     Dosage: 750 UNK
     Route: 042
     Dates: start: 20200201, end: 20200202
  29. ATIVAN [Concomitant]
     Active Substance: LORAZEPAM
  30. DAPTOMYCIN. [Concomitant]
     Active Substance: DAPTOMYCIN
  31. VORICONAZOLE. [Concomitant]
     Active Substance: VORICONAZOLE
  32. CEFEPIME [Concomitant]
     Active Substance: CEFEPIME HYDROCHLORIDE
  33. IPRATROPIUM [Concomitant]
     Active Substance: IPRATROPIUM
  34. ISAVUCONAZONIUM [Concomitant]
     Active Substance: ISAVUCONAZONIUM
  35. LEVOFLOXACIN. [Concomitant]
     Active Substance: LEVOFLOXACIN
  36. TAMSULOSIN [Concomitant]
     Active Substance: TAMSULOSIN
  37. ZINC SULFATE. [Concomitant]
     Active Substance: ZINC SULFATE
  38. DULOXETINE. [Concomitant]
     Active Substance: DULOXETINE
  39. GABAPENTIN. [Concomitant]
     Active Substance: GABAPENTIN
  40. MIRALAX [Concomitant]
     Active Substance: POLYETHYLENE GLYCOL 3350

REACTIONS (7)
  - Urinary incontinence [Unknown]
  - Pain [Unknown]
  - Death [Fatal]
  - Anal incontinence [Unknown]
  - Cytokine release syndrome [Recovered/Resolved]
  - Presyncope [Recovered/Resolved]
  - Neurotoxicity [Recovered/Resolved]

NARRATIVE: CASE EVENT DATE: 20200125
